FAERS Safety Report 18344306 (Version 1)
Quarter: 2020Q4

REPORT INFORMATION
  Report Type: Spontaneous
  Country: GB (occurrence: GB)
  Receive Date: 20201005
  Receipt Date: 20201005
  Transmission Date: 20210114
  Serious: Yes (Hospitalization)
  Sender: FDA-Public Use
  Company Number: GB-TEVA-2020-GB-1834994

PATIENT
  Age: 77 Year
  Sex: Female

DRUGS (21)
  1. BISOPROLOL [Concomitant]
     Active Substance: BISOPROLOL
     Dosage: 5 MG
  2. BISOPROLOL [Concomitant]
     Active Substance: BISOPROLOL
     Dosage: 2.5 MILLIGRAM DAILY; IN THE EVENING
  3. SPIRONOLACTONE. [Concomitant]
     Active Substance: SPIRONOLACTONE
     Dosage: 25 MG
  4. VENTOLIN [Concomitant]
     Active Substance: ALBUTEROL SULFATE
     Dosage: 100MICROGRAMS/DOSE?ONE OR TWO PUFFS TO BE INHALED UP TO FOUR TIMES A DAY, FORM OF ADMIN. TEXT : INHA
     Route: 055
  5. FUROSEMIDE. [Concomitant]
     Active Substance: FUROSEMIDE
     Dosage: 160 MILLIGRAM DAILY; MORNING AND LUNCHTIME
  6. AMOXICILLIN. [Suspect]
     Active Substance: AMOXICILLIN
     Dosage: 1500 MG
     Route: 065
  7. SIMVASTATIN. [Concomitant]
     Active Substance: SIMVASTATIN
     Dosage: 20 MILLIGRAM DAILY; AT NIGHT
  8. WARFARIN [Concomitant]
     Active Substance: WARFARIN
     Indication: ANTICOAGULANT THERAPY
     Dosage: TAKE AS PRESCRIBED IN ANTICOAGULANT TREATMENT BOOK, UNIT DOSE: 1 MG
  9. LOTRIDERM [Concomitant]
     Active Substance: BETAMETHASONE DIPROPIONATE\CLOTRIMAZOLE
     Dosage: APPLY THINLY AS DIRECTED, UNIT DOSE: 2 DOSAGE FORMS
  10. WARFARIN [Concomitant]
     Active Substance: WARFARIN
     Dosage: TAKE AS PRESCRIBED IN ANTICOAGULANT TREATMENT BOOK, UNIT DOSE: 3 MG
  11. LIQUID PARAFFIN [Concomitant]
  12. CLOBETASONE [Concomitant]
     Active Substance: CLOBETASONE
     Dosage: 2 DOSAGE FORMS
  13. SALBUTAMOL [Concomitant]
     Active Substance: ALBUTEROL
  14. PARACETAMOL [Concomitant]
     Active Substance: ACETAMINOPHEN
     Dosage: ONE OR TWO TO BE TAKEN EVERY FOUR HOURS
  15. SERTRALINE [Concomitant]
     Active Substance: SERTRALINE HYDROCHLORIDE
     Dosage: 50 MG
  16. TRIMBOW [Concomitant]
     Active Substance: BECLOMETHASONE DIPROPIONATE\FORMOTEROL FUMARATE\GLYCOPYRROLATE
     Dosage: 87MICROGRAMS/DOSE / 5MICROGRAMS/DOSE / 9MICROGRAMS/DOSE, UNIT DOSE: 4 DOSAGE FORMS, INHALER
     Route: 055
  17. LANSOPRAZOLE. [Concomitant]
     Active Substance: LANSOPRAZOLE
     Dosage: 30 MILLIGRAM DAILY; EACH MORNING
  18. DERMOL [Concomitant]
     Active Substance: BENZALKONIUM CHLORIDE\CHLORHEXIDINE HYDROCHLORIDE\ISOPROPYL MYRISTATE\PARAFFIN
  19. CARBOCISTEINE [Concomitant]
     Active Substance: CARBOCYSTEINE
     Dosage: 1500 MG
  20. MORPHINE [Concomitant]
     Active Substance: MORPHINE
     Indication: PAIN
     Dosage: 10MG/5ML UP TO FOUR TIMES A DAY, UNIT DOSE: 1.25 ML
  21. PARAFFIN WHITE SOFT [Concomitant]

REACTIONS (1)
  - International normalised ratio increased [Unknown]
